FAERS Safety Report 8598192-6 (Version None)
Quarter: 2012Q3

REPORT INFORMATION
  Report Type: 
  Country: None (occurrence: None)
  Receive Date: 20120802
  Receipt Date: 20120706
  Transmission Date: 20120928
  Serious: Yes (Life-Threatening, Hospitalization)
  Sender: FDA-Public Use
  Company Number: 54973 RAE070612TG001

PATIENT
  Age: 10 Month
  Sex: Male

DRUGS (1)
  1. HYLAND'S TEETHING TABLETS [Suspect]
     Indication: TEETHING
     Dosage: 2 TABS X 2 DOSES

REACTIONS (4)
  - DYSPNOEA [None]
  - USE OF ACCESSORY RESPIRATORY MUSCLES [None]
  - INFANTILE ASTHMA [None]
  - PYREXIA [None]
